FAERS Safety Report 5839492-X (Version None)
Quarter: 2008Q3

REPORT INFORMATION
  Report Type: 
  Country: None (occurrence: None)
  Receive Date: 20080807
  Receipt Date: 20080729
  Transmission Date: 20090109
  Serious: Yes (Death, Other)
  Sender: FDA-Public Use
  Company Number: 2007-00943

PATIENT
  Age: 58 Year
  Sex: Female
  Weight: 44 kg

DRUGS (19)
  1. VELCADE [Suspect]
     Indication: MULTIPLE MYELOMA
     Dosage: 1.50 MG, INTRAVENOUS
     Route: 042
     Dates: start: 20070220, end: 20070302
  2. DEXAMETHASONE TAB [Suspect]
     Indication: MULTIPLE MYELOMA
     Dosage: 20.00 MG, INTRAVENOUS, 40 MG, INTRAVENOUS
     Route: 042
     Dates: start: 20070220, end: 20070303
  3. DEXAMETHASONE TAB [Suspect]
     Indication: MULTIPLE MYELOMA
     Dosage: 20.00 MG, INTRAVENOUS, 40 MG, INTRAVENOUS
     Route: 042
     Dates: start: 20070402, end: 20070407
  4. KAMAG G (MAGNESIUM OXIDE) [Concomitant]
  5. ALLOPURINOL [Concomitant]
  6. MUCOSTA (REBAMIPIDE) [Concomitant]
  7. ALOSENN (TARAXACUM OFFICINALE, ACHILLEA, SENNA LEAF, RUBIA ROOT TINCTU [Concomitant]
  8. VIT K CAP [Concomitant]
  9. RABEPRAZOLE SODIUM [Concomitant]
  10. LOXONIN (LOXOPROFEN SODIUM) [Concomitant]
  11. HALCION [Concomitant]
  12. LASIX [Concomitant]
  13. ALDACTONE [Concomitant]
  14. FENTANYL-100 [Concomitant]
  15. FULCALIQ 1 [Concomitant]
  16. NEO-MINOPHAGEN C (GLYCYRRHIZIC ACID, AMMONIUM SALT) [Concomitant]
  17. BISPHONAL (DISODIUM INCADRONATE) [Concomitant]
  18. RED BLOOD CELLS [Concomitant]
  19. PLATELETS [Concomitant]

REACTIONS (23)
  - BEDRIDDEN [None]
  - BLOOD BETA-D-GLUCAN INCREASED [None]
  - BONE MARROW FAILURE [None]
  - C-REACTIVE PROTEIN DECREASED [None]
  - C-REACTIVE PROTEIN INCREASED [None]
  - CONDITION AGGRAVATED [None]
  - FUNGAL INFECTION [None]
  - HEPATIC STEATOSIS [None]
  - HERPES ZOSTER [None]
  - HYPOAESTHESIA [None]
  - IMMUNE SYSTEM DISORDER [None]
  - LUNG DISORDER [None]
  - MULTI-ORGAN FAILURE [None]
  - MULTIPLE MYELOMA [None]
  - PLATELET COUNT DECREASED [None]
  - PNEUMONIA FUNGAL [None]
  - PYREXIA [None]
  - RED BLOOD CELL COUNT DECREASED [None]
  - RENAL DISORDER [None]
  - RENAL IMPAIRMENT [None]
  - RESPIRATORY FAILURE [None]
  - TREMOR [None]
  - WHITE BLOOD CELL COUNT DECREASED [None]
